FAERS Safety Report 5662783-2 (Version None)
Quarter: 2008Q1

REPORT INFORMATION
  Report Type: 
  Country: None (occurrence: None)
  Receive Date: 20080221
  Receipt Date: 20070717
  Transmission Date: 20080703
  Serious: Yes (Other)
  Sender: FDA-Public Use
  Company Number: PHEH2007US08178

PATIENT
  Age: 47 Year
  Sex: Male
  Weight: 70.3 kg

DRUGS (2)
  1. DIOVAN [Suspect]
     Indication: HYPERTENSION
     Dosage: 80 MG, QD, ORAL
     Route: 048
     Dates: start: 20060101
  2. LISINOPRIL [Suspect]
     Indication: HYPERTENSION
     Dosage: ORAL
     Route: 048
     Dates: start: 20040101, end: 20060401

REACTIONS (1)
  - ANGIOEDEMA [None]
